FAERS Safety Report 14562020 (Version 1)
Quarter: 2018Q1

REPORT INFORMATION
  Report Type: Spontaneous
  Country: FR (occurrence: FR)
  Receive Date: 20180222
  Receipt Date: 20180222
  Transmission Date: 20180509
  Serious: Yes (Other)
  Sender: FDA-Public Use
  Company Number: FR-AUROBINDO-AUR-APL-2018-008561

PATIENT
  Age: 63 Year
  Sex: Male
  Weight: 108 kg

DRUGS (6)
  1. ABERIN MAX [Suspect]
     Active Substance: GLIMEPIRIDE\METFORMIN
     Indication: DIABETES MELLITUS
     Dosage: UNK
  2. CABERGOLINE. [Concomitant]
     Active Substance: CABERGOLINE
     Indication: PRODUCT USED FOR UNKNOWN INDICATION
     Dosage: UNK
  3. ATORVASTATIN [Suspect]
     Active Substance: ATORVASTATIN
     Indication: MACROANGIOPATHY
     Dosage: UNK
  4. CLOPIDOGREL [Suspect]
     Active Substance: CLOPIDOGREL BISULFATE
     Indication: MACROANGIOPATHY
     Dosage: UNK
  5. LANREOTIDE [Concomitant]
     Active Substance: LANREOTIDE
     Indication: PRODUCT USED FOR UNKNOWN INDICATION
     Dosage: UNK
  6. NOVOMIX [Suspect]
     Active Substance: INSULIN ASPART
     Indication: DIABETES MELLITUS
     Dosage: 2

REACTIONS (1)
  - Vitreous haemorrhage [Unknown]

NARRATIVE: CASE EVENT DATE: 2016
